FAERS Safety Report 20299746 (Version 1)
Quarter: 2022Q1

REPORT INFORMATION
  Report Type: Spontaneous
  Country: US (occurrence: None)
  Receive Date: 20220105
  Receipt Date: 20220105
  Transmission Date: 20220423
  Serious: No
  Sender: FDA-Public Use
  Company Number: None

PATIENT

DRUGS (2)
  1. REPATHA [Suspect]
     Active Substance: EVOLOCUMAB
  2. REPATHA [Concomitant]
     Active Substance: EVOLOCUMAB

REACTIONS (5)
  - Sinus headache [None]
  - Fatigue [None]
  - Oropharyngeal pain [None]
  - Injection site bruising [None]
  - Pruritus [None]

NARRATIVE: CASE EVENT DATE: 20220101
